FAERS Safety Report 20586292 (Version 1)
Quarter: 2022Q1

REPORT INFORMATION
  Report Type: Spontaneous
  Country: US (occurrence: US)
  Receive Date: 20220313
  Receipt Date: 20220313
  Transmission Date: 20220424
  Serious: Yes (Other)
  Sender: FDA-Public Use
  Company Number: US-TEVA-2022-US-2008653

PATIENT
  Age: 51 Year
  Sex: Male

DRUGS (1)
  1. COPAXONE [Suspect]
     Active Substance: GLATIRAMER ACETATE
     Indication: Multiple sclerosis
     Route: 065
     Dates: end: 2017

REACTIONS (5)
  - Multiple sclerosis relapse [Unknown]
  - Drug ineffective [Unknown]
  - Adverse drug reaction [Unknown]
  - Cold sweat [Unknown]
  - Flushing [Unknown]

NARRATIVE: CASE EVENT DATE: 20170101
